FAERS Safety Report 19451969 (Version 1)
Quarter: 2021Q2

REPORT INFORMATION
  Report Type: Spontaneous
  Country: CA (occurrence: CA)
  Receive Date: 20210623
  Receipt Date: 20210623
  Transmission Date: 20210717
  Serious: Yes (Hospitalization)
  Sender: FDA-Public Use
  Company Number: CA-009507513-2106CAN005544

PATIENT
  Age: 84 Year
  Sex: Male
  Weight: 71 kg

DRUGS (14)
  1. SERAX [SERRAPEPTASE] [Concomitant]
     Dosage: UNK
     Route: 048
  2. ELIQUIS [Concomitant]
     Active Substance: APIXABAN
     Dosage: UNK
     Route: 048
  3. VENTOLIN [Concomitant]
     Active Substance: ALBUTEROL SULFATE
     Dosage: DOSAGE FORM: NOT SPECIFIED
  4. KEYTRUDA [Suspect]
     Active Substance: PEMBROLIZUMAB
     Indication: LUNG NEOPLASM MALIGNANT
     Dosage: 155 MILLIGRAM, 1 EVERY 3 WEEKS; 4 ML SINGLE USE VIAL
     Route: 042
  5. CODEINE [Concomitant]
     Active Substance: CODEINE
     Dosage: UNK
  6. LAX?A?DAY [Concomitant]
     Active Substance: POLYETHYLENE GLYCOL 3350
     Dosage: DOSAGE FORM: POWDER FOR SOLUTION ORAL
     Route: 048
  7. TYLENOL [Concomitant]
     Active Substance: ACETAMINOPHEN
     Dosage: UNK
  8. FLOVENT [Concomitant]
     Active Substance: FLUTICASONE PROPIONATE
     Dosage: DOSAGE FORM: NOT SPECIFIED
  9. SENOKOT [Concomitant]
     Active Substance: SENNOSIDES
     Dosage: DOSAGE FORM: NOT SPECIFIED
  10. ULTIBRO BREEZHALER [GLYCOPYRRONIUM BROMIDE;INDACATEROL MALEATE] [Concomitant]
     Dosage: UNK
  11. COLACE [Concomitant]
     Active Substance: DOCUSATE SODIUM
     Dosage: DOSAGE FORM: NOT SPECIFIED
  12. CRESTOR [Concomitant]
     Active Substance: ROSUVASTATIN CALCIUM
     Dosage: UNK
     Route: 048
  13. LOPRESOR [METOPROLOL FUMARATE] [Concomitant]
     Active Substance: METOPROLOL FUMARATE
     Dosage: UNK
     Route: 048
  14. PANTOLOC [Concomitant]
     Active Substance: PANTOPRAZOLE SODIUM
     Dosage: DOSAGE FORM: TABLET (ENTERIC?COATED)
     Route: 048

REACTIONS (8)
  - General physical health deterioration [Unknown]
  - Pneumonia [Unknown]
  - Fatigue [Unknown]
  - Body temperature increased [Unknown]
  - Dyspnoea [Unknown]
  - Pneumonitis [Unknown]
  - Cough [Unknown]
  - Weight decreased [Unknown]
